FAERS Safety Report 5147249-0 (Version None)
Quarter: 2006Q4

REPORT INFORMATION
  Report Type: 
  Country: None (occurrence: None)
  Receive Date: 20061103
  Receipt Date: 20061018
  Transmission Date: 20070319
  Serious: Yes (Death, Other)
  Sender: FDA-Public Use
  Company Number: 2006116336

PATIENT
  Age: 76 Year
  Sex: Female
  Weight: 73.5 kg

DRUGS (7)
  1. SUTENT [Suspect]
     Indication: TRANSITIONAL CELL CARCINOMA
     Dosage: 50 MG (50 MG, 1 IN 1 D), ORAL
     Route: 048
     Dates: start: 20060919, end: 20060924
  2. TOPROL-XL [Concomitant]
  3. VASOTEC [Concomitant]
     Indication: TRANSITIONAL CELL CARCINOMA
     Dosage: 50 MG (50 MG, 1 IN 1 D), ORAL
     Route: 048
     Dates: start: 20060919, end: 20060924
  4. TOPROL-XL [Concomitant]
  5. VASOTEC [Concomitant]
  6. XALATAN [Concomitant]
  7. LIPITOR [Concomitant]

REACTIONS (13)
  - ABDOMINAL PAIN [None]
  - BACK PAIN [None]
  - CARDIAC ARREST [None]
  - CONDITION AGGRAVATED [None]
  - DRUG TOXICITY [None]
  - HEPATIC HAEMORRHAGE [None]
  - HYPERTENSION [None]
  - NAUSEA [None]
  - PROCEDURAL PAIN [None]
  - RESPIRATORY RATE INCREASED [None]
  - SINUS BRADYCARDIA [None]
  - SINUS TACHYCARDIA [None]
  - VOMITING [None]
